FAERS Safety Report 8796009 (Version 2)
Quarter: 2012Q4

REPORT INFORMATION
  Report Type: 
  Country: US (occurrence: US)
  Receive Date: 20120919
  Receipt Date: 20121004
  Transmission Date: 20130627
  Serious: Yes (Hospitalization)
  Sender: FDA-Public Use
  Company Number: US-UCBSA-065722

PATIENT
  Sex: Female
  Weight: 68.49 kg

DRUGS (6)
  1. CIMZIA [Suspect]
     Indication: CROHN^S DISEASE
     Dates: start: 20120814
  2. CIMZIA [Suspect]
     Indication: CROHN^S DISEASE
     Dates: end: 201204
  3. LYRICA [Concomitant]
     Dosage: ONCE NIGHTLY
  4. PAXIL [Concomitant]
     Dosage: ONCE MORNING
  5. LORTAB [Concomitant]
  6. ZANAFLEX [Concomitant]

REACTIONS (5)
  - Abscess [Not Recovered/Not Resolved]
  - Weight increased [Unknown]
  - Nasopharyngitis [Not Recovered/Not Resolved]
  - Sinus disorder [Not Recovered/Not Resolved]
  - Oropharyngeal pain [Not Recovered/Not Resolved]
